FAERS Safety Report 10213665 (Version 2)
Quarter: 2014Q2

REPORT INFORMATION
  Report Type: Spontaneous
  Country: US (occurrence: None)
  Receive Date: 20140530
  Receipt Date: 20140620
  Transmission Date: 20141212
  Serious: Yes (Hospitalization)
  Sender: FDA-Public Use
  Company Number: CIO14036917

PATIENT
  Sex: Male

DRUGS (1)
  1. CREST PRO-HEALTH COMPLETE (CLEAN MINT) [Suspect]
     Dosage: 1 MOUTHF
     Route: 048

REACTIONS (7)
  - Gastrointestinal haemorrhage [None]
  - Rectal haemorrhage [None]
  - Throat irritation [None]
  - Dyspepsia [None]
  - Oropharyngeal pain [None]
  - Accidental exposure to product [None]
  - Exposure via ingestion [None]
